FAERS Safety Report 21487366 (Version 1)
Quarter: 2022Q4

REPORT INFORMATION
  Report Type: Report from Study
  Country: US (occurrence: US)
  Receive Date: 20221020
  Receipt Date: 20221020
  Transmission Date: 20230112
  Serious: No
  Sender: FDA-Public Use
  Company Number: US-ABBVIE-4169631

PATIENT
  Sex: Female

DRUGS (4)
  1. HUMIRA [Suspect]
     Active Substance: ADALIMUMAB
     Indication: Hidradenitis
     Route: 058
  2. HUMIRA [Suspect]
     Active Substance: ADALIMUMAB
     Dosage: CITRATE FREE
     Route: 058
  3. Pfizer/BioNTech Covid-19vaccine [Concomitant]
     Indication: COVID-19 immunisation
     Dosage: FIRST DOSE?FREQUENCY: ONE IN ONCE
     Route: 030
     Dates: start: 202105, end: 202105
  4. Pfizer/BioNTech Covid-19vaccine [Concomitant]
     Indication: COVID-19 immunisation
     Dosage: SECOND DOSE?FREQUENCY: ONE IN ONCE
     Route: 030
     Dates: start: 202106, end: 202106

REACTIONS (2)
  - Injection site pain [Recovered/Resolved]
  - Injection site pain [Recovered/Resolved]
